FAERS Safety Report 9222377 (Version 6)
Quarter: 2013Q4

REPORT INFORMATION
  Report Type: Report from Study
  Country: JP (occurrence: JP)
  Receive Date: 20130410
  Receipt Date: 20131211
  Transmission Date: 20140711
  Serious: Yes (Hospitalization)
  Sender: FDA-Public Use
  Company Number: JP-PFIZER INC-2013106435

PATIENT
  Age: 76 Year
  Sex: Female
  Weight: 43.4 kg

DRUGS (11)
  1. CRIZOTINIB [Suspect]
     Indication: NON-SMALL CELL LUNG CANCER
     Dosage: 250 MG, 2X/DAY
     Route: 048
     Dates: start: 20130301, end: 20130304
  2. CRIZOTINIB [Suspect]
     Dosage: 250 MG, 2X/DAY
     Route: 048
     Dates: start: 20130308, end: 20130315
  3. CRIZOTINIB [Suspect]
     Dosage: 200 MG, 2X/DAY
     Route: 048
     Dates: start: 20130322, end: 20130329
  4. HYPEN [Concomitant]
     Dosage: 200 MG, 1X/DAY
     Route: 048
     Dates: end: 20130321
  5. FUROSEMIDE [Concomitant]
     Dosage: 10 MG, 1X/DAY
     Route: 048
  6. CRESTOR [Concomitant]
     Dosage: 25 MG, 1X/DAY
     Route: 048
  7. TAKEPRON [Concomitant]
     Dosage: 30 MG, 1X/DAY
     Route: 048
     Dates: end: 20130325
  8. MAGNESIUM OXIDE [Concomitant]
     Dosage: 990 MG, 3X/DAY
     Route: 048
     Dates: start: 20130309
  9. ELSPRI CA [Concomitant]
     Dosage: 1200 MG, 3X/DAY
     Route: 048
     Dates: start: 20130325
  10. PRIMPERAN [Concomitant]
     Dosage: 15 MG, AS NEEDED
     Route: 048
     Dates: start: 20130302
  11. ZOMETA [Concomitant]
     Dosage: 4 MG, 1X/DAY
     Route: 042
     Dates: start: 20130321, end: 20130321

REACTIONS (2)
  - Colitis [Recovered/Resolved]
  - Colitis [Recovered/Resolved]
